FAERS Safety Report 18611160 (Version 1)
Quarter: 2020Q4

REPORT INFORMATION
  Report Type: Spontaneous
  Country: CH (occurrence: CH)
  Receive Date: 20201214
  Receipt Date: 20201214
  Transmission Date: 20210114
  Serious: Yes (Other)
  Sender: FDA-Public Use
  Company Number: CH-ASTRAZENECA-2020SF64010

PATIENT
  Age: 0 Year
  Sex: Female
  Weight: 1.2 kg

DRUGS (5)
  1. OXYCONTIN [Suspect]
     Active Substance: OXYCODONE HYDROCHLORIDE
     Indication: COMPLEX REGIONAL PAIN SYNDROME
     Dosage: DATE OF GOAL AND END OF TREATMENT NOT KNOWN, 60 MG/DAY DECREASED 15 MG/DAY IN SEPTEMBER 2020
     Route: 064
  2. TEMESTA (LORAZEPAM) [Suspect]
     Active Substance: LORAZEPAM
     Dosage: DOSAGE AND DATE OF START OF TREATMENT NOT KNOWN, IN RESERVE; AS NECESSARY
     Route: 064
  3. CYMBALTA [Suspect]
     Active Substance: DULOXETINE HYDROCHLORIDE
     Dosage: DOSAGE AS WELL AS DATES OF START AND END OF TREATMENT NOT KNOWN.
     Route: 064
  4. SEROQUEL [Suspect]
     Active Substance: QUETIAPINE FUMARATE
     Indication: BORDERLINE PERSONALITY DISORDER
     Dosage: DOSAGE AS WELL AS START AND END DATES NOT KNOWN
     Route: 064
     Dates: start: 2020, end: 2020
  5. LAMICTAL [Suspect]
     Active Substance: LAMOTRIGINE
     Dosage: 25.0MG UNKNOWN
     Route: 064
     Dates: start: 202009

REACTIONS (6)
  - Foetal growth restriction [Recovered/Resolved]
  - Supraventricular extrasystoles [Unknown]
  - Premature baby [Recovered/Resolved]
  - Neutropenia neonatal [Recovered/Resolved]
  - Leukopenia neonatal [Recovered/Resolved]
  - Exposure during pregnancy [Recovered/Resolved]

NARRATIVE: CASE EVENT DATE: 2020
